FAERS Safety Report 9100886 (Version 4)
Quarter: 2014Q2

REPORT INFORMATION
  Report Type: Spontaneous
  Country: US (occurrence: US)
  Receive Date: 20130214
  Receipt Date: 20140416
  Transmission Date: 20141212
  Serious: No
  Sender: FDA-Public Use
  Company Number: US-PFIZER INC-2013033660

PATIENT
  Sex: Male

DRUGS (3)
  1. LYRICA [Suspect]
     Dosage: UNK
  2. LYRICA [Suspect]
     Dosage: UNK
  3. LYRICA [Suspect]
     Dosage: 75 MG, UNK

REACTIONS (6)
  - Drug ineffective [Unknown]
  - Oropharyngeal pain [Unknown]
  - Speech disorder [Unknown]
  - Increased upper airway secretion [Unknown]
  - Peripheral swelling [Unknown]
  - Pain [Unknown]
